FAERS Safety Report 11096073 (Version 1)
Quarter: 2015Q2

REPORT INFORMATION
  Report Type: Spontaneous
  Country: IT (occurrence: None)
  Receive Date: 20150505
  Receipt Date: 20150505
  Transmission Date: 20150821
  Serious: Yes (Other)
  Sender: FDA-Public Use
  Company Number: 2843748

PATIENT
  Age: 77 Year
  Sex: Female

DRUGS (2)
  1. (CAPECITABINE) [Concomitant]
     Active Substance: CAPECITABINE
  2. (OXALIPLATIN) [Suspect]
     Active Substance: OXALIPLATIN
     Indication: RECTAL NEOPLASM
     Dosage: 130 MG/M 2 MILLIGRAM(S) /SQ. METER, (UNKNOWN) INTRAVENOUS (NOT OTHERWISE SPECIFIED)
     Route: 042
     Dates: start: 20150413, end: 20150413

REACTIONS (3)
  - Salivary hypersecretion [None]
  - Muscle contracture [None]
  - Dysphagia [None]

NARRATIVE: CASE EVENT DATE: 20150413
